FAERS Safety Report 6502473-7 (Version None)
Quarter: 2009Q4

REPORT INFORMATION
  Report Type: 
  Country: None (occurrence: None)
  Receive Date: 20091208
  Receipt Date: 20091120
  Transmission Date: 20100525
  Serious: Yes (Other)
  Sender: FDA-Public Use
  Company Number: B0609460A

PATIENT
  Age: 34 Year
  Sex: Female

DRUGS (4)
  1. ZIDOVUDINE [Suspect]
  2. LAMIVUDINE [Suspect]
  3. NEVIRAPINE [Suspect]
  4. LOPINAVIR AND RITONAVIR [Concomitant]

REACTIONS (8)
  - DYSARTHRIA [None]
  - GRAND MAL CONVULSION [None]
  - HEADACHE [None]
  - HEMIPARESIS [None]
  - IMMOBILE [None]
  - IMMUNE RECONSTITUTION SYNDROME [None]
  - MUSCULAR WEAKNESS [None]
  - PROGRESSIVE MULTIFOCAL LEUKOENCEPHALOPATHY [None]
